FAERS Safety Report 6378087-9 (Version None)
Quarter: 2009Q3

REPORT INFORMATION
  Report Type: 
  Country: None (occurrence: None)
  Receive Date: 20090925
  Receipt Date: 20090922
  Transmission Date: 20100115
  Serious: Yes (Hospitalization)
  Sender: FDA-Public Use
  Company Number: US-GENENTECH-285185

PATIENT
  Sex: Male
  Weight: 69 kg

DRUGS (7)
  1. AVASTIN [Suspect]
     Indication: PROSTATE CANCER
     Dosage: 10 MG/KG, Q2W
     Route: 042
     Dates: start: 20090526, end: 20090609
  2. TEMSIROLIMUS [Suspect]
     Indication: PROSTATE CANCER
     Dosage: 20 MG, 1/WEEK
     Route: 042
     Dates: start: 20090519, end: 20090609
  3. ZOFRAN [Concomitant]
     Indication: DRUG USE FOR UNKNOWN INDICATION
     Dosage: 8 MG, UNK
     Dates: start: 20090519
  4. ROXICET [Concomitant]
     Indication: DRUG USE FOR UNKNOWN INDICATION
     Dosage: UNK
     Dates: start: 20090519
  5. NORVASC [Concomitant]
     Indication: DRUG USE FOR UNKNOWN INDICATION
     Dosage: 2.5 MG, UNK
     Dates: start: 20090519
  6. PRILOSEC [Concomitant]
     Indication: DRUG USE FOR UNKNOWN INDICATION
     Dosage: 20 MG, UNK
     Dates: start: 20040203
  7. LISINOPRIL [Concomitant]
     Indication: DRUG USE FOR UNKNOWN INDICATION
     Dosage: 20 MG, UNK
     Route: 048
     Dates: start: 20040203

REACTIONS (5)
  - ANAEMIA [None]
  - CONSTIPATION [None]
  - DEHYDRATION [None]
  - DIVERTICULITIS [None]
  - PYREXIA [None]
